FAERS Safety Report 5061084-3 (Version None)
Quarter: 2006Q3

REPORT INFORMATION
  Report Type: 
  Country: None (occurrence: None)
  Receive Date: 20060719
  Receipt Date: 20060719
  Transmission Date: 20061208
  Serious: Yes (Hospitalization)
  Sender: FDA-Public Use
  Company Number: None

PATIENT
  Age: 87 Year
  Sex: Male
  Weight: 80.2867 kg

DRUGS (1)
  1. METOPROLOL TARTRATE [Suspect]
     Dosage: 25MG PO BID
     Route: 048

REACTIONS (3)
  - BRADYCARDIA [None]
  - CHEST PAIN [None]
  - HYPERTENSION [None]
